FAERS Safety Report 5283140-7 (Version None)
Quarter: 2007Q1

REPORT INFORMATION
  Report Type: 
  Country: None (occurrence: None)
  Receive Date: 20070327
  Receipt Date: 20070313
  Transmission Date: 20070707
  Serious: Yes (Congenital Anomaly)
  Sender: FDA-Public Use
  Company Number: T200700289

PATIENT
  Sex: Male
  Weight: 3.1 kg

DRUGS (2)
  1. SODIUM IODIDE I 131 [Suspect]
     Indication: BASEDOW'S DISEASE
     Dosage: 404 MBQ, SINGLE, TRANSPLACENTAL
     Route: 064
  2. SODIUM IODIDE I 131 [Suspect]
     Indication: ISOTOPE THERAPY TO THYROID
     Dosage: 404 MBQ, SINGLE, TRANSPLACENTAL
     Route: 064

REACTIONS (4)
  - CONGENITAL HYPOTHYROIDISM [None]
  - DRUG EXPOSURE DURING PREGNANCY [None]
  - INDUCED LABOUR [None]
  - PRE-ECLAMPSIA [None]
